FAERS Safety Report 6318859-X (Version None)
Quarter: 2009Q3

REPORT INFORMATION
  Report Type: 
  Country: None (occurrence: None)
  Receive Date: 20090821
  Receipt Date: 20090811
  Transmission Date: 20100115
  Serious: Yes (Other)
  Sender: FDA-Public Use
  Company Number: US-ELI_LILLY_AND_COMPANY-US200907002976

PATIENT
  Sex: Female
  Weight: 39.909 kg

DRUGS (3)
  1. STRATTERA [Suspect]
     Indication: ATTENTION DEFICIT/HYPERACTIVITY DISORDER
     Dosage: 25 MG, DAILY (1/D)
     Route: 065
     Dates: start: 20050101
  2. STRATTERA [Suspect]
     Dosage: 25 MG, DAILY (1/D)
     Route: 065
     Dates: end: 20090623
  3. FOCALIN [Concomitant]
     Indication: ATTENTION DEFICIT/HYPERACTIVITY DISORDER
     Dosage: 15 MG, DAILY (1/D)
     Route: 065
     Dates: start: 20060101

REACTIONS (3)
  - EPISTAXIS [None]
  - JAUNDICE [None]
  - LIVER FUNCTION TEST ABNORMAL [None]
